FAERS Safety Report 10100635 (Version 4)
Quarter: 2014Q2

REPORT INFORMATION
  Report Type: Spontaneous
  Country: JP (occurrence: JP)
  Receive Date: 20140423
  Receipt Date: 20140523
  Transmission Date: 20141212
  Serious: Yes (Other)
  Sender: FDA-Public Use
  Company Number: PHHY2014JP047862

PATIENT
  Age: 68 Year
  Sex: Female

DRUGS (1)
  1. PARLODEL [Suspect]
     Indication: CUSHING^S SYNDROME
     Route: 048

REACTIONS (3)
  - Infection [Unknown]
  - Blood cortisol increased [Unknown]
  - Drug ineffective [Unknown]
